FAERS Safety Report 24538223 (Version 1)
Quarter: 2024Q4

REPORT INFORMATION
  Report Type: Report from Study
  Country: IT (occurrence: IT)
  Receive Date: 20241023
  Receipt Date: 20241023
  Transmission Date: 20250115
  Serious: Yes (Disabling)
  Sender: AMGEN
  Company Number: IT-AMGEN-ITANI2024205709

PATIENT
  Age: 72 Year
  Sex: Female

DRUGS (4)
  1. DENOSUMAB [Suspect]
     Active Substance: DENOSUMAB
     Indication: Metastases to bone
     Dosage: 120 MILLIGRAM, (EVERY 28 DAYS)
     Route: 058
     Dates: start: 202201, end: 202401
  2. FASLODEX [Concomitant]
     Active Substance: FULVESTRANT
     Indication: Invasive ductal breast carcinoma
     Dosage: 500 MILLIGRAM, EVERY 14 DAYS
     Route: 030
     Dates: start: 202201, end: 20240115
  3. IBRANCE [Concomitant]
     Active Substance: PALBOCICLIB
     Dosage: 125 MILLIGRAM/ 28-DAY CYCLES (21 DAYS ON AND 7 DAYS OFF)
     Route: 048
     Dates: start: 202201, end: 20240115
  4. PALIPERIDONE PALMITATE [Concomitant]
     Active Substance: PALIPERIDONE PALMITATE
     Dosage: UNK

REACTIONS (4)
  - Pain [Recovering/Resolving]
  - Osteonecrosis of jaw [Recovering/Resolving]
  - Swelling face [Recovering/Resolving]
  - Jaw fistula [Recovering/Resolving]

NARRATIVE: CASE EVENT DATE: 20240116
